FAERS Safety Report 21169949 (Version 2)
Quarter: 2022Q3

REPORT INFORMATION
  Report Type: Other
  Country: US (occurrence: None)
  Receive Date: 20220804
  Receipt Date: 20220812
  Transmission Date: 20221027
  Serious: Yes (Other)
  Sender: FDA-Public Use
  Company Number: US-ROCHE-3133714

PATIENT
  Age: 25 Year
  Sex: Female
  Weight: 54.026 kg

DRUGS (3)
  1. OCREVUS [Suspect]
     Active Substance: OCRELIZUMAB
     Indication: Relapsing-remitting multiple sclerosis
     Route: 042
     Dates: start: 20210410
  2. OCREVUS [Suspect]
     Active Substance: OCRELIZUMAB
     Dosage: MOST RECENT INFUSION (600 MG)
     Route: 042
     Dates: start: 20220404
  3. AMOXICILLIN [Concomitant]
     Active Substance: AMOXICILLIN
     Indication: Infection

REACTIONS (13)
  - JC polyomavirus test positive [Unknown]
  - Maternal exposure before pregnancy [Unknown]
  - Nasopharyngitis [Recovered/Resolved]
  - Infection [Unknown]
  - Limb discomfort [Unknown]
  - Muscle spasms [Unknown]
  - Neuralgia [Unknown]
  - Asthenia [Unknown]
  - Arthralgia [Unknown]
  - Bruxism [Unknown]
  - Alopecia [Unknown]
  - Eye pain [Unknown]
  - Fatigue [Unknown]

NARRATIVE: CASE EVENT DATE: 20210915
